FAERS Safety Report 24164427 (Version 2)
Quarter: 2025Q3

REPORT INFORMATION
  Report Type: Spontaneous
  Country: RU (occurrence: RU)
  Receive Date: 20240801
  Receipt Date: 20250818
  Transmission Date: 20251020
  Serious: Yes (Other)
  Sender: TEVA
  Company Number: RU-TEVA-VS-3226176

PATIENT
  Age: 36 Year
  Sex: Male

DRUGS (17)
  1. CLOPIDOGREL [Suspect]
     Active Substance: CLOPIDOGREL BISULFATE
     Indication: Gangrene
     Route: 065
     Dates: start: 2020
  2. ONCOVIN [Suspect]
     Active Substance: VINCRISTINE SULFATE
     Indication: Hodgkin^s disease
     Route: 065
     Dates: start: 201801, end: 2018
  3. BLEOMYCIN SULFATE [Suspect]
     Active Substance: BLEOMYCIN SULFATE
     Indication: Hodgkin^s disease
     Route: 065
     Dates: start: 201801, end: 2018
  4. PREDNISOLONE [Suspect]
     Active Substance: PREDNISOLONE
     Indication: Raynaud^s phenomenon
     Route: 065
     Dates: start: 20200225
  5. ADRIAMYCIN [Suspect]
     Active Substance: DOXORUBICIN HYDROCHLORIDE
     Indication: Hodgkin^s disease
     Route: 065
     Dates: start: 201801, end: 2018
  6. ETOPOSIDE [Suspect]
     Active Substance: ETOPOSIDE
     Indication: Hodgkin^s disease
     Route: 065
     Dates: start: 201801, end: 2018
  7. NIVOLUMAB [Suspect]
     Active Substance: NIVOLUMAB
     Indication: Hodgkin^s disease
     Route: 065
     Dates: start: 20190916
  8. NIVOLUMAB [Suspect]
     Active Substance: NIVOLUMAB
     Indication: Hodgkin^s disease
     Dosage: TOTAL 4 DOSES
     Route: 065
     Dates: start: 2018, end: 2018
  9. CYTARABINE [Concomitant]
     Active Substance: CYTARABINE
     Indication: Hodgkin^s disease
     Route: 065
     Dates: start: 2018, end: 2018
  10. CYCLOPHOSPHAMIDE [Suspect]
     Active Substance: CYCLOPHOSPHAMIDE
     Indication: Hodgkin^s disease
     Route: 065
     Dates: start: 201801, end: 2018
  11. DEXAMETHASONE [Concomitant]
     Active Substance: DEXAMETHASONE
     Indication: Hodgkin^s disease
     Route: 065
     Dates: start: 2018, end: 2018
  12. BRENTUXIMAB [Suspect]
     Active Substance: BRENTUXIMAB
     Indication: Hodgkin^s disease
     Route: 065
     Dates: start: 202006
  13. BRENTUXIMAB [Suspect]
     Active Substance: BRENTUXIMAB
     Indication: Hodgkin^s disease
     Route: 065
     Dates: end: 201909
  14. PREDNISONE [Suspect]
     Active Substance: PREDNISONE
     Indication: Hodgkin^s disease
     Route: 065
     Dates: start: 201801, end: 2018
  15. PROCARBAZINE HYDROCHLORIDE [Suspect]
     Active Substance: PROCARBAZINE HYDROCHLORIDE
     Indication: Hodgkin^s disease
     Route: 065
     Dates: start: 201801, end: 2018
  16. INFLIXIMAB [Suspect]
     Active Substance: INFLIXIMAB
     Indication: Raynaud^s phenomenon
     Route: 065
     Dates: start: 20200225
  17. CISPLATIN [Concomitant]
     Active Substance: CISPLATIN
     Indication: Hodgkin^s disease
     Route: 065
     Dates: start: 2018, end: 2018

REACTIONS (4)
  - Ischaemia [Recovering/Resolving]
  - Raynaud^s phenomenon [Recovering/Resolving]
  - Drug ineffective [Unknown]
  - Osteonecrosis [Recovering/Resolving]

NARRATIVE: CASE EVENT DATE: 20180101
